FAERS Safety Report 4402170-8 (Version None)
Quarter: 2004Q3

REPORT INFORMATION
  Report Type: 
  Country: None (occurrence: None)
  Receive Date: 20040715
  Receipt Date: 20040707
  Transmission Date: 20050211
  Serious: Yes (Hospitalization)
  Sender: FDA-Public Use
  Company Number: GBWYE889708JUL04

PATIENT
  Sex: Male

DRUGS (2)
  1. CHILDREN'S ADVIL [Suspect]
     Indication: UPPER RESPIRATORY TRACT INFECTION
     Dosage: 50MG (100MG/5ML), ORAL
     Route: 048
     Dates: start: 20040515, end: 20040516
  2. ACETAMINOPHEN [Concomitant]

REACTIONS (3)
  - EYELID OEDEMA [None]
  - RASH [None]
  - SWELLING FACE [None]
